FAERS Safety Report 5790201-2 (Version None)
Quarter: 2008Q2

REPORT INFORMATION
  Report Type: 
  Country: None (occurrence: None)
  Receive Date: 20080626
  Receipt Date: 20080229
  Transmission Date: 20081010
  Serious: No
  Sender: FDA-Public Use
  Company Number: A0704890A

PATIENT
  Age: 34 Year

DRUGS (1)
  1. ALLI [Suspect]
     Route: 048

REACTIONS (9)
  - ABDOMINAL DISTENSION [None]
  - CONSTIPATION [None]
  - DRUG INEFFECTIVE [None]
  - ILL-DEFINED DISORDER [None]
  - MALAISE [None]
  - PH URINE DECREASED [None]
  - THERAPEUTIC RESPONSE UNEXPECTED [None]
  - WEIGHT FLUCTUATION [None]
  - WEIGHT INCREASED [None]
